FAERS Safety Report 6495957-1 (Version None)
Quarter: 2009Q4

REPORT INFORMATION
  Report Type: 
  Country: None (occurrence: None)
  Receive Date: 20091214
  Receipt Date: 20090903
  Transmission Date: 20100525
  Serious: Yes (Hospitalization, Other)
  Sender: FDA-Public Use
  Company Number: US-BRISTOL-MYERS SQUIBB COMPANY-14768402

PATIENT

DRUGS (1)
  1. ABILIFY [Suspect]

REACTIONS (2)
  - SUICIDE ATTEMPT [None]
  - TYPE 2 DIABETES MELLITUS [None]
